FAERS Safety Report 4618381-2 (Version None)
Quarter: 2005Q1

REPORT INFORMATION
  Report Type: 
  Country: None (occurrence: None)
  Receive Date: 20050323
  Receipt Date: 20050309
  Transmission Date: 20050727
  Serious: Yes (Death, Other)
  Sender: FDA-Public Use
  Company Number: 2005043134

PATIENT
  Age: 79 Year
  Sex: Male
  Weight: 29.0302 kg

DRUGS (2)
  1. LYRICA [Suspect]
     Indication: NEUROPATHY
     Dosage: 150 MG (75 MG, 2 IN 1 D), ORAL
     Route: 048
     Dates: start: 20050101
  2. SIL-NORBORAL (GLIBENCLAMIDE, METFORMIN) [Concomitant]

REACTIONS (6)
  - CONFUSIONAL STATE [None]
  - DIABETIC KETOACIDOSIS [None]
  - HYPEROSMOLAR STATE [None]
  - MEMORY IMPAIRMENT [None]
  - SHOCK [None]
  - SOMNOLENCE [None]
